FAERS Safety Report 4397569-2 (Version None)
Quarter: 2004Q3

REPORT INFORMATION
  Report Type: 
  Country: None (occurrence: None)
  Receive Date: 20040708
  Receipt Date: 20040623
  Transmission Date: 20050211
  Serious: Yes (Death)
  Sender: FDA-Public Use
  Company Number: 2004-DE-03471GD

PATIENT
  Age: 49 Year
  Sex: Female
  Weight: 50 kg

DRUGS (1)
  1. AZATHIOPRINE [Suspect]
     Indication: MULTIPLE SCLEROSIS

REACTIONS (14)
  - ASTHENIA [None]
  - CHROMOSOME ABNORMALITY [None]
  - FATIGUE [None]
  - HAEMOGLOBIN DECREASED [None]
  - HEMIPARESIS [None]
  - HYPERREFLEXIA [None]
  - LEUKOPENIA [None]
  - MYELODYSPLASTIC SYNDROME [None]
  - PALLOR [None]
  - PLATELET COUNT DECREASED [None]
  - POST PROCEDURAL HAEMORRHAGE [None]
  - RETICULOCYTE COUNT DECREASED [None]
  - SUBDURAL HAEMATOMA [None]
  - TACHYCARDIA [None]
